FAERS Safety Report 7639798-8 (Version None)
Quarter: 2011Q3

REPORT INFORMATION
  Report Type: 
  Country: None (occurrence: None)
  Receive Date: 20110727
  Receipt Date: 20110725
  Transmission Date: 20111222
  Serious: Yes (Other)
  Sender: FDA-Public Use
  Company Number: CHPA2011GB09406

PATIENT
  Sex: Male

DRUGS (6)
  1. SIMVASTATIN [Concomitant]
     Indication: BLOOD CHOLESTEROL INCREASED
  2. NICOTINELL GUM 2 MG FRUIT [Suspect]
     Indication: SMOKING CESSATION THERAPY
     Dosage: 2 MG, UNK
     Route: 002
     Dates: start: 20100701
  3. SIMVASTATIN [Concomitant]
     Indication: HYPERTENSION
     Dosage: UNK, UNK
     Route: 065
  4. NICOTINELL CHEWING GUM FRUIT [Suspect]
     Dosage: 4 MG, UNK
     Route: 002
     Dates: start: 20020101, end: 20100701
  5. METFORMIN HCL [Concomitant]
     Indication: TYPE 2 DIABETES MELLITUS
     Dosage: UNK, UNK
     Route: 065
  6. NICOTINELL CHEWING GUM FRUIT [Suspect]
     Indication: SMOKING CESSATION THERAPY
     Dosage: 4 MG, 24 PIECES PER DAY
     Route: 002

REACTIONS (4)
  - NICOTINE DEPENDENCE [None]
  - OVERDOSE [None]
  - DEPENDENCE [None]
  - INCORRECT DRUG ADMINISTRATION DURATION [None]
